FAERS Safety Report 15983265 (Version 15)
Quarter: 2024Q4

REPORT INFORMATION
  Report Type: Report from Study
  Country: JP (occurrence: JP)
  Receive Date: 20190220
  Receipt Date: 20241003
  Transmission Date: 20250115
  Serious: Yes (Hospitalization, Disabling)
  Sender: ABBVIE
  Company Number: JP-ABBVIE-18S-087-2599342-00

PATIENT
  Sex: Male
  Weight: 56 kg

DRUGS (18)
  1. CARBIDOPA\LEVODOPA [Suspect]
     Active Substance: CARBIDOPA\LEVODOPA
     Indication: Parkinson^s disease
     Dosage: MD: 9.3 ML CD: 2.4 ML/HR ? 16 HRS
     Route: 050
     Dates: start: 20180913, end: 20180918
  2. CARBIDOPA\LEVODOPA [Suspect]
     Active Substance: CARBIDOPA\LEVODOPA
     Dosage: MD: 9.3 ML CD: 2.7 ML/HR ? 16 HRS
     Route: 050
     Dates: start: 20180919, end: 20180920
  3. CARBIDOPA\LEVODOPA [Suspect]
     Active Substance: CARBIDOPA\LEVODOPA
     Dosage: MD: 9.3 ML CD: 3.0 ML/HR ? 16 HRS ED: 1 ML/UNIT
     Route: 050
     Dates: start: 20180921, end: 20180925
  4. CARBIDOPA\LEVODOPA [Suspect]
     Active Substance: CARBIDOPA\LEVODOPA
     Dosage: MD: 11.3 ML CD: 3.6 ML/HR ? 16 HRS
     Route: 050
     Dates: start: 20180926, end: 20190204
  5. CARBIDOPA\LEVODOPA [Suspect]
     Active Substance: CARBIDOPA\LEVODOPA
     Dosage: MD: 11.3 ML CD: 3.6 ML/HR ? 16 HRS
     Route: 050
     Dates: start: 20190308, end: 20200728
  6. CARBIDOPA\LEVODOPA [Suspect]
     Active Substance: CARBIDOPA\LEVODOPA
     Route: 050
     Dates: start: 20200728
  7. VONOPRAZAN FUMARATE [Concomitant]
     Active Substance: VONOPRAZAN FUMARATE
     Indication: Prophylaxis
     Route: 048
     Dates: start: 20190301
  8. ROTIGOTINE [Concomitant]
     Active Substance: ROTIGOTINE
     Indication: Parkinson^s disease
     Route: 062
     Dates: start: 20191126
  9. ROTIGOTINE [Concomitant]
     Active Substance: ROTIGOTINE
     Indication: Parkinson^s disease
     Route: 062
     Dates: end: 20190326
  10. ROTIGOTINE [Concomitant]
     Active Substance: ROTIGOTINE
     Indication: Parkinson^s disease
     Route: 062
     Dates: start: 20190330, end: 20191125
  11. ROTIGOTINE [Concomitant]
     Active Substance: ROTIGOTINE
     Indication: Parkinson^s disease
     Route: 062
     Dates: start: 20190327, end: 20190329
  12. METHYLCOBALAMIN [Concomitant]
     Active Substance: METHYLCOBALAMIN
     Indication: Product used for unknown indication
     Route: 048
     Dates: start: 20180928, end: 20190415
  13. METHYLCOBALAMIN [Concomitant]
     Active Substance: METHYLCOBALAMIN
     Indication: Product used for unknown indication
     Route: 048
     Dates: start: 20190416
  14. ENTACAPONE [Concomitant]
     Active Substance: ENTACAPONE
     Indication: Parkinson^s disease
     Dosage: TIME INTERVAL: 0.33333333 DAYS: 300 MILLIGRAM
     Route: 048
     Dates: start: 20190204, end: 20190308
  15. CARBIDOPA AND LEVODOPA [Concomitant]
     Active Substance: CARBIDOPA\LEVODOPA
     Indication: Parkinson^s disease
     Dosage: TIME INTERVAL: 0.16666667 DAYS: 600 MILLIGRAM?CARBIDOPA HYDRATE AND LEVODOPA
     Route: 048
     Dates: start: 20190204, end: 20190308
  16. Carbidopa hydrate and levodopa [Concomitant]
     Indication: Parkinson^s disease
     Dosage: TIME INTERVAL: 0.16666667 DAYS: 600 MILLIGRAM
     Route: 048
     Dates: start: 20190204, end: 20190308
  17. RAMELTEON [Concomitant]
     Active Substance: RAMELTEON
     Indication: Insomnia
     Route: 048
     Dates: start: 20190228
  18. SENNOSIDES [Concomitant]
     Active Substance: SENNOSIDES
     Indication: Constipation
     Route: 048
     Dates: start: 20190225

REACTIONS (14)
  - Musculoskeletal stiffness [Not Recovered/Not Resolved]
  - Peripheral sensory neuropathy [Not Recovered/Not Resolved]
  - Device connection issue [Recovered/Resolved]
  - Neuropathy peripheral [Recovered/Resolved with Sequelae]
  - Mobility decreased [Unknown]
  - Muscular weakness [Unknown]
  - Tinnitus [Recovering/Resolving]
  - Emotional distress [Recovering/Resolving]
  - Device dislocation [Unknown]
  - Pain in extremity [Unknown]
  - Gait inability [Unknown]
  - Vitamin B12 decreased [Recovered/Resolved]
  - Hypovitaminosis [Recovering/Resolving]
  - Hyperhomocysteinaemia [Recovering/Resolving]

NARRATIVE: CASE EVENT DATE: 20180101
